FAERS Safety Report 8458449-6 (Version None)
Quarter: 2012Q2

REPORT INFORMATION
  Report Type: 
  Country: None (occurrence: None)
  Receive Date: 20120622
  Receipt Date: 20120619
  Transmission Date: 20120825
  Serious: Yes (Hospitalization)
  Sender: FDA-Public Use
  Company Number: US-BRISTOL-MYERS SQUIBB COMPANY-16695934

PATIENT
  Age: 41 Year
  Sex: Male

DRUGS (2)
  1. TRUVADA [Suspect]
  2. REYATAZ [Suspect]

REACTIONS (1)
  - CONVULSION [None]
